FAERS Safety Report 19145665 (Version 1)
Quarter: 2021Q2

REPORT INFORMATION
  Report Type: Spontaneous
  Country: IT (occurrence: IT)
  Receive Date: 20210416
  Receipt Date: 20210416
  Transmission Date: 20210717
  Serious: Yes (Death)
  Sender: FDA-Public Use
  Company Number: IT-MYLANLABS-2021M1022421

PATIENT
  Age: 60 Year
  Sex: Female

DRUGS (3)
  1. AMITRIPTYLINE [Suspect]
     Active Substance: AMITRIPTYLINE
     Indication: DELUSION
     Dosage: TWO EMPTY BOTTLES OF...
     Route: 048
  2. CLOTIAPINE [Suspect]
     Active Substance: CLOTHIAPINE
     Indication: DELUSION
     Dosage: ONE BOTTLE OF CLOTIAPINE...
     Route: 048
  3. PHENOBARBITAL. [Suspect]
     Active Substance: PHENOBARBITAL
     Indication: PRODUCT USED FOR UNKNOWN INDICATION
     Dosage: A USED BLISTER OF....
     Route: 048

REACTIONS (3)
  - Depressed level of consciousness [Fatal]
  - Completed suicide [Fatal]
  - Toxicity to various agents [Fatal]
